FAERS Safety Report 5918182-9 (Version None)
Quarter: 2008Q3

REPORT INFORMATION
  Report Type: 
  Country: None (occurrence: None)
  Receive Date: 20080909
  Receipt Date: 20080306
  Transmission Date: 20090109
  Serious: Yes (Death)
  Sender: FDA-Public Use
  Company Number: 093-20785-08030543

PATIENT
  Age: 82 Year
  Sex: Male

DRUGS (4)
  1. THALIDOMIDE [Suspect]
     Indication: MULTIPLE MYELOMA
     Dosage: 100 MG DAILY ORAL
     Route: 048
     Dates: start: 20050616, end: 20080213
  2. DEXAMETHASONE TAB [Concomitant]
  3. MELPHALAN (MELPHALAN) [Concomitant]
  4. PREDNISONE [Concomitant]

REACTIONS (1)
  - RENAL FAILURE [None]
